FAERS Safety Report 8840925 (Version 2)
Quarter: 2015Q2

REPORT INFORMATION
  Report Type: Report from Study
  Country: US (occurrence: US)
  Receive Date: 20121015
  Receipt Date: 20150622
  Transmission Date: 20150821
  Serious: Yes (Hospitalization)
  Sender: FDA-Public Use
  Company Number: US-ROCHE-1117024

PATIENT
  Sex: Female
  Weight: 57 kg

DRUGS (2)
  1. NUTROPIN [Suspect]
     Active Substance: SOMATROPIN
     Dosage: 7 INJECTIONS/WEEK
     Route: 058
  2. NUTROPIN [Suspect]
     Active Substance: SOMATROPIN
     Indication: HYPOPITUITARISM
     Dosage: 7 INJECTIONS/WEEK
     Route: 058
     Dates: start: 20010621

REACTIONS (1)
  - Malaise [Unknown]
